FAERS Safety Report 24641465 (Version 1)
Quarter: 2024Q4

REPORT INFORMATION
  Report Type: Spontaneous
  Country: US (occurrence: None)
  Receive Date: 20241119
  Receipt Date: 20241119
  Transmission Date: 20250114
  Serious: No
  Sender: Public
  Company Number: None

PATIENT
  Age: 49 Year
  Sex: Female

DRUGS (6)
  1. XPHOZAH [Suspect]
     Active Substance: TENAPANOR HYDROCHLORIDE
     Indication: Hyperphosphataemia
  2. CALCIUM ACETATE [Concomitant]
     Active Substance: CALCIUM ACETATE
  3. GABAPENTIN 1OOMG CAPSULE; [Concomitant]
  4. METROPOLOL ER SUCCINATE 100MG [Concomitant]
  5. OMEPRAZOLE 20MG CAPSUU^^ [Concomitant]
  6. MOUNJARO 5MG/0.5MI INJ [Concomitant]

REACTIONS (1)
  - Diarrhoea [None]
